FAERS Safety Report 24250355 (Version 1)
Quarter: 2024Q3

REPORT INFORMATION
  Report Type: Spontaneous
  Country: US (occurrence: None)
  Receive Date: 20240824
  Receipt Date: 20240824
  Transmission Date: 20241017
  Serious: Yes (Life-Threatening, Hospitalization)
  Sender: Public
  Company Number: None

PATIENT
  Age: 31 Year
  Sex: Female
  Weight: 47.25 kg

DRUGS (2)
  1. RITUXIMAB [Suspect]
     Active Substance: RITUXIMAB
     Indication: Chronic kidney disease
  2. RITUXIMAB [Suspect]
     Active Substance: RITUXIMAB
     Indication: Proteinuria

REACTIONS (10)
  - Pyrexia [None]
  - Arthralgia [None]
  - Rash [None]
  - Serum sickness [None]
  - Haemoglobin decreased [None]
  - Fatigue [None]
  - Gait inability [None]
  - Gastric ulcer [None]
  - Disturbance in attention [None]
  - Haemolysis [None]

NARRATIVE: CASE EVENT DATE: 20210728
